FAERS Safety Report 14655929 (Version 1)
Quarter: 2018Q1

REPORT INFORMATION
  Report Type: Spontaneous
  Country: US (occurrence: US)
  Receive Date: 20180317
  Receipt Date: 20180317
  Transmission Date: 20180509
  Serious: Yes (Other)
  Sender: FDA-Public Use
  Company Number: None

PATIENT
  Age: 65 Year
  Sex: Male

DRUGS (13)
  1. ATORVASTATIN [Concomitant]
     Active Substance: ATORVASTATIN
  2. PANTOPRAZOLE [Concomitant]
     Active Substance: PANTOPRAZOLE
  3. XOLAIR [Suspect]
     Active Substance: OMALIZUMAB
     Indication: RESPIRATORY DISORDER
     Route: 058
     Dates: start: 20170306
  4. CALCIUM CARB [Concomitant]
     Active Substance: CALCIUM CARBONATE
  5. CENTRUM SILVER [Concomitant]
     Active Substance: MINERALS\VITAMINS
  6. DORZOLOMIDE [Concomitant]
     Active Substance: DORZOLAMIDE
  7. PREDNISONE. [Concomitant]
     Active Substance: PREDNISONE
  8. ADVAIR DISKU [Concomitant]
  9. BENAZEPRIL [Concomitant]
     Active Substance: BENAZEPRIL HYDROCHLORIDE
  10. VITAMIN B COMPLEX [Concomitant]
     Active Substance: CYANOCOBALAMIN\DEXPANTHENOL\NIACINAMIDE\PYRIDOXINE HYDROCHLORIDE\RIBOFLAVIN 5^-PHOSPHATE SODIUM\THIAMINE HYDROCHLORIDE\VITAMIN B COMPLEX
  11. MONTELUKAST [Concomitant]
     Active Substance: MONTELUKAST SODIUM
  12. EPIPEN-JR [Concomitant]
  13. LATANOPROST. [Concomitant]
     Active Substance: LATANOPROST

REACTIONS (1)
  - Brain neoplasm [None]

NARRATIVE: CASE EVENT DATE: 201803
